FAERS Safety Report 4493399-1 (Version None)
Quarter: 2004Q4

REPORT INFORMATION
  Report Type: 
  Country: None (occurrence: None)
  Receive Date: 20041104
  Receipt Date: 20041028
  Transmission Date: 20050328
  Serious: Yes (Hospitalization, Other)
  Sender: FDA-Public Use
  Company Number: US-MERCK-0410USA04319

PATIENT
  Age: 68 Year
  Sex: Female

DRUGS (8)
  1. VIOXX [Suspect]
     Indication: ARTHRITIS
     Route: 048
     Dates: start: 20010821, end: 20011115
  2. FUROSEMIDE [Concomitant]
     Route: 065
  3. NORTRIPTYLINE [Concomitant]
     Route: 065
  4. AVAPRO [Concomitant]
     Route: 065
  5. ZOCOR [Concomitant]
     Route: 048
  6. ATENOLOL [Concomitant]
     Route: 065
  7. PRILOSEC [Concomitant]
     Route: 065
  8. LEVOXYL [Concomitant]
     Route: 065

REACTIONS (4)
  - ADVERSE EVENT [None]
  - CHEST PAIN [None]
  - DYSPNOEA [None]
  - GASTRITIS [None]
